FAERS Safety Report 18459677 (Version 2)
Quarter: 2020Q4

REPORT INFORMATION
  Report Type: Report from Study
  Country: CA (occurrence: CA)
  Receive Date: 20201103
  Receipt Date: 20201217
  Transmission Date: 20210114
  Serious: Yes (Other)
  Sender: FDA-Public Use
  Company Number: CA-HLS-202006527

PATIENT
  Age: 62 Year
  Sex: Female

DRUGS (6)
  1. CARBOPLATIN. [Concomitant]
     Active Substance: CARBOPLATIN
     Indication: NEOPLASM MALIGNANT
     Route: 042
     Dates: start: 20200623, end: 20201014
  2. EPIVAL [Concomitant]
     Active Substance: DIVALPROEX SODIUM
     Indication: PSYCHOTIC DISORDER
     Dosage: HS
     Route: 048
  3. IMOVANE [Concomitant]
     Active Substance: ZOPICLONE
     Dosage: HS
     Route: 065
  4. COGENTIN [Concomitant]
     Active Substance: BENZTROPINE MESYLATE
     Indication: PSYCHOTIC DISORDER
     Dosage: HS
     Route: 048
  5. PACLITAXEL. [Concomitant]
     Active Substance: PACLITAXEL
     Indication: NEOPLASM MALIGNANT
     Route: 042
     Dates: start: 20200623, end: 20201014
  6. CLOZARIL [Suspect]
     Active Substance: CLOZAPINE
     Indication: PSYCHOTIC DISORDER
     Dosage: HS
     Route: 048
     Dates: start: 2019

REACTIONS (3)
  - White blood cell count decreased [Recovered/Resolved]
  - Neutrophil count decreased [Recovered/Resolved]
  - Adenocarcinoma [Unknown]

NARRATIVE: CASE EVENT DATE: 2020
